FAERS Safety Report 9995241 (Version 1)
Quarter: 2014Q1

REPORT INFORMATION
  Report Type: Spontaneous
  Country: US (occurrence: None)
  Receive Date: 20140225
  Receipt Date: 20140225
  Transmission Date: 20141002
  Serious: Yes (Other)
  Sender: FDA-Public Use
  Company Number: 2013-221

PATIENT
  Age: 43 Year
  Sex: Male

DRUGS (6)
  1. PRIALT [Suspect]
     Indication: PAIN
     Route: 037
  2. PRIALT [Suspect]
     Indication: BACK PAIN
     Route: 037
  3. PRIALT [Suspect]
     Indication: INTERVERTEBRAL DISC DEGENERATION
     Route: 037
  4. PRIALT [Suspect]
     Indication: INTERVERTEBRAL DISC PROTRUSION
     Route: 037
  5. NEURONTIN(GABAPENTIN) [Concomitant]
  6. PIROXICAM(PIROXICAM) [Concomitant]

REACTIONS (9)
  - Urinary retention [None]
  - Urethritis noninfective [None]
  - Gastrointestinal motility disorder [None]
  - Hypertonic bladder [None]
  - Food allergy [None]
  - Drug ineffective [None]
  - Pain [None]
  - Anxiety [None]
  - Device issue [None]
